FAERS Safety Report 4318956-4 (Version None)
Quarter: 2004Q1

REPORT INFORMATION
  Report Type: 
  Country: None (occurrence: None)
  Receive Date: 20040316
  Receipt Date: 20040226
  Transmission Date: 20041129
  Serious: Yes (Hospitalization)
  Sender: FDA-Public Use
  Company Number: F01200400397

PATIENT
  Age: 72 Year
  Sex: Male

DRUGS (7)
  1. (OXALIPLATIN) - SOLUTION - 250 MG [Suspect]
     Indication: COLORECTAL CANCER METASTATIC
     Dosage: 250 MG Q3W, INTRAVENOUS NOS
     Route: 042
     Dates: start: 20040108, end: 20040128
  2. (CAPECITABINE) - TABLET - 2000 MG [Suspect]
     Dosage: 2000 MG/DAY FROM DAY 1 TO DAY 14, Q3W, ORAL
     Route: 048
     Dates: start: 20040108
  3. CANDESARTAN/HYDROCHLOROTHIAZIDE [Concomitant]
  4. AMOXICILLIN [Concomitant]
  5. DEXAMETHASONE [Concomitant]
  6. TROPISETRON [Concomitant]
  7. PANTOPRAZOLE [Concomitant]

REACTIONS (9)
  - BLOOD GLUCOSE INCREASED [None]
  - CATHETER RELATED COMPLICATION [None]
  - CHEST PAIN [None]
  - COLITIS [None]
  - DEHYDRATION [None]
  - DYSPNOEA [None]
  - HAEMATEMESIS [None]
  - PULMONARY EMBOLISM [None]
  - RENAL IMPAIRMENT [None]
